FAERS Safety Report 8248750-3 (Version None)
Quarter: 2012Q1

REPORT INFORMATION
  Report Type: 
  Country: None (occurrence: None)
  Receive Date: 20120331
  Receipt Date: 20120329
  Transmission Date: 20120608
  Serious: Yes (Death)
  Sender: FDA-Public Use
  Company Number: PHEH2012US006936

PATIENT
  Sex: Female

DRUGS (4)
  1. RECLAST [Suspect]
     Dosage: 5 MG, UNK
     Route: 042
     Dates: start: 20110427
  2. VITAMIN D [Concomitant]
     Dosage: UNK UKN, UNK
  3. PROZAC [Concomitant]
     Dosage: UNK UKN, UNK
  4. PREVACID [Concomitant]
     Dosage: UNK UKN, UNK

REACTIONS (1)
  - DEATH [None]
